FAERS Safety Report 8603374-0 (Version None)
Quarter: 2012Q3

REPORT INFORMATION
  Report Type: 
  Country: None (occurrence: None)
  Receive Date: 20120817
  Receipt Date: 20120723
  Transmission Date: 20120928
  Serious: Yes (Hospitalization, Other)
  Sender: FDA-Public Use
  Company Number: FR-MYLANLABS-2006S1011245

PATIENT
  Age: 7 Year
  Sex: Male
  Weight: 8.7 kg

DRUGS (17)
  1. CYSTAGON [Suspect]
     Indication: CYSTINOSIS
     Route: 048
     Dates: start: 19980101
  2. CELLCEPT [Concomitant]
     Indication: IMMUNOSUPPRESSANT DRUG THERAPY
     Dates: start: 20070101
  3. AMLODIPINE [Concomitant]
     Indication: HYPERTENSION
     Dates: start: 20070101
  4. LEVOTHYROXINE SODIUM [Concomitant]
     Dates: start: 20070101
  5. VENTOLIN [Concomitant]
     Indication: ASTHMA
  6. CYSTAGON [Suspect]
     Route: 048
  7. COLOFAC /00139402/ [Concomitant]
     Dates: start: 20070101
  8. FLUTICASONE PROPIONATE [Concomitant]
     Indication: ASTHMA
  9. CYSTAGON [Suspect]
     Route: 048
  10. PROGRAF [Concomitant]
     Indication: IMMUNOSUPPRESSANT DRUG THERAPY
     Dates: start: 20070101
  11. CYSTAGON [Suspect]
     Route: 048
  12. GENOTROPIN [Concomitant]
     Indication: BLOOD GROWTH HORMONE
     Dates: start: 20070101
  13. ALPHACALCIDOL [Concomitant]
     Indication: VITAMIN SUPPLEMENTATION
     Dates: start: 20070101
  14. CYSTAGON [Suspect]
     Route: 048
  15. PREDNISONE TAB [Concomitant]
     Indication: IMMUNOSUPPRESSANT DRUG THERAPY
     Dates: start: 20070101
  16. CYSTAGON [Suspect]
     Dates: start: 19980101
  17. LABETALOL HCL [Concomitant]
     Indication: HYPERTENSION

REACTIONS (8)
  - HYPERSENSITIVITY [None]
  - BLOOD CREATININE INCREASED [None]
  - VOMITING [None]
  - LUPUS NEPHRITIS [None]
  - HEADACHE [None]
  - RENAL IMPAIRMENT [None]
  - PROTEINURIA [None]
  - DIZZINESS [None]
